FAERS Safety Report 20173870 (Version 3)
Quarter: 2022Q2

REPORT INFORMATION
  Report Type: Spontaneous
  Country: AU (occurrence: AU)
  Receive Date: 20211213
  Receipt Date: 20220404
  Transmission Date: 20220721
  Serious: Yes (Other)
  Sender: FDA-Public Use
  Company Number: AU-CIPLA (EU) LIMITED-2021AU07878

PATIENT

DRUGS (36)
  1. METFORMIN [Suspect]
     Active Substance: METFORMIN HYDROCHLORIDE
     Indication: Psoriatic arthropathy
     Dosage: UNK
     Route: 065
  2. METFORMIN [Suspect]
     Active Substance: METFORMIN HYDROCHLORIDE
     Indication: Pustular psoriasis
  3. METFORMIN [Suspect]
     Active Substance: METFORMIN HYDROCHLORIDE
     Indication: Hidradenitis
  4. ESCITALOPRAM [Suspect]
     Active Substance: ESCITALOPRAM OXALATE
     Indication: Psoriatic arthropathy
     Dosage: UNK
     Route: 065
  5. ESCITALOPRAM [Suspect]
     Active Substance: ESCITALOPRAM OXALATE
     Indication: Pustular psoriasis
  6. ESCITALOPRAM [Suspect]
     Active Substance: ESCITALOPRAM OXALATE
     Indication: Hidradenitis
  7. PREGABALIN [Suspect]
     Active Substance: PREGABALIN
     Indication: Psoriatic arthropathy
     Dosage: UNK
     Route: 065
  8. PREGABALIN [Suspect]
     Active Substance: PREGABALIN
     Indication: Pustular psoriasis
  9. PREGABALIN [Suspect]
     Active Substance: PREGABALIN
     Indication: Hidradenitis
  10. FEXOFENADINE [Suspect]
     Active Substance: FEXOFENADINE HYDROCHLORIDE
     Indication: Psoriatic arthropathy
     Dosage: UNK
     Route: 065
  11. FEXOFENADINE [Suspect]
     Active Substance: FEXOFENADINE HYDROCHLORIDE
     Indication: Pustular psoriasis
  12. FEXOFENADINE [Suspect]
     Active Substance: FEXOFENADINE HYDROCHLORIDE
     Indication: Hidradenitis
  13. COSENTYX [Suspect]
     Active Substance: SECUKINUMAB
     Indication: Psoriatic arthropathy
     Dosage: 300 MILLIGRAM, MONTHLY (9.9 MG DAILY DOSE)
     Route: 058
     Dates: start: 20210309
  14. COSENTYX [Suspect]
     Active Substance: SECUKINUMAB
     Indication: Pustular psoriasis
     Dosage: UNK
     Route: 058
     Dates: start: 20210309
  15. COSENTYX [Suspect]
     Active Substance: SECUKINUMAB
     Indication: Hidradenitis
  16. SULFASALAZINE [Suspect]
     Active Substance: SULFASALAZINE
     Indication: Psoriatic arthropathy
     Dosage: UNK
     Route: 065
  17. SULFASALAZINE [Suspect]
     Active Substance: SULFASALAZINE
     Indication: Pustular psoriasis
  18. SULFASALAZINE [Suspect]
     Active Substance: SULFASALAZINE
     Indication: Hidradenitis
  19. RABEPRAZOLE [Suspect]
     Active Substance: RABEPRAZOLE
     Indication: Psoriatic arthropathy
     Dosage: UNK
     Route: 065
  20. RABEPRAZOLE [Suspect]
     Active Substance: RABEPRAZOLE
     Indication: Pustular psoriasis
  21. RABEPRAZOLE [Suspect]
     Active Substance: RABEPRAZOLE
     Indication: Hidradenitis
  22. PROGESTERONE [Suspect]
     Active Substance: PROGESTERONE
     Indication: Psoriatic arthropathy
     Dosage: UNK, ONLY MINI PILL
     Route: 065
  23. PROGESTERONE [Suspect]
     Active Substance: PROGESTERONE
     Indication: Pustular psoriasis
  24. PROGESTERONE [Suspect]
     Active Substance: PROGESTERONE
     Indication: Hidradenitis
  25. PIZOTYLINE [Suspect]
     Active Substance: PIZOTYLINE
     Indication: Psoriatic arthropathy
     Dosage: UNK
     Route: 065
  26. PIZOTYLINE [Suspect]
     Active Substance: PIZOTYLINE
     Indication: Pustular psoriasis
  27. PIZOTYLINE [Suspect]
     Active Substance: PIZOTYLINE
     Indication: Hidradenitis
  28. DIAZEPAM [Suspect]
     Active Substance: DIAZEPAM
     Indication: Psoriatic arthropathy
     Dosage: UNK, PRN
     Route: 065
  29. DIAZEPAM [Suspect]
     Active Substance: DIAZEPAM
     Indication: Pustular psoriasis
  30. DIAZEPAM [Suspect]
     Active Substance: DIAZEPAM
     Indication: Hidradenitis
  31. CLINDAMYCIN [Suspect]
     Active Substance: CLINDAMYCIN
     Indication: Psoriatic arthropathy
     Dosage: UNK
     Route: 065
  32. CLINDAMYCIN [Suspect]
     Active Substance: CLINDAMYCIN
     Indication: Pustular psoriasis
  33. CLINDAMYCIN [Suspect]
     Active Substance: CLINDAMYCIN
     Indication: Hidradenitis
  34. PREDNISOLONE [Suspect]
     Active Substance: PREDNISOLONE
     Indication: Psoriatic arthropathy
     Dosage: UNK
     Route: 065
  35. PREDNISOLONE [Suspect]
     Active Substance: PREDNISOLONE
     Indication: Pustular psoriasis
  36. PREDNISOLONE [Suspect]
     Active Substance: PREDNISOLONE
     Indication: Hidradenitis

REACTIONS (6)
  - Tonsillitis [Unknown]
  - Infection [Unknown]
  - Lower respiratory tract infection [Unknown]
  - Hidradenitis [Unknown]
  - Condition aggravated [Unknown]
  - COVID-19 [Unknown]

NARRATIVE: CASE EVENT DATE: 20210717
